FAERS Safety Report 9541342 (Version 1)
Quarter: 2013Q3

REPORT INFORMATION
  Report Type: Spontaneous
  Country: US (occurrence: US)
  Receive Date: 20130923
  Receipt Date: 20130923
  Transmission Date: 20140515
  Serious: No
  Sender: FDA-Public Use
  Company Number: US-B.I. PHARMACEUTICALS,INC./RIDGEFIELD-2013-BI-28853BP

PATIENT
  Age: 77 Year
  Sex: Female

DRUGS (3)
  1. COMBIVENT [Suspect]
     Indication: BRONCHITIS CHRONIC
     Route: 055
     Dates: start: 201308, end: 201309
  2. ADVAIR [Concomitant]
     Route: 055
  3. NASONEX [Concomitant]
     Dosage: FORMULATION: NASAL SPRAY
     Route: 045

REACTIONS (2)
  - Off label use [Recovered/Resolved]
  - Drug effect decreased [Recovered/Resolved]
